FAERS Safety Report 11748056 (Version 2)
Quarter: 2015Q4

REPORT INFORMATION
  Report Type: Report from Study
  Country: RO (occurrence: RO)
  Receive Date: 20151117
  Receipt Date: 20151118
  Transmission Date: 20160304
  Serious: Yes (Hospitalization)
  Sender: FDA-Public Use
  Company Number: RO-ABBVIE-15P-135-1500162-00

PATIENT
  Age: 61 Year
  Sex: Male

DRUGS (1)
  1. DUODOPA [Suspect]
     Active Substance: CARBIDOPA\LEVODOPA
     Indication: PARKINSON^S DISEASE
     Dosage: MD 5 ML, CR 2.5 ML, ED 1.3 ML
     Route: 065
     Dates: start: 20131211

REACTIONS (3)
  - Gastric ulcer [Recovering/Resolving]
  - Erosive duodenitis [Recovering/Resolving]
  - Gastrointestinal mucosa hyperaemia [Recovering/Resolving]

NARRATIVE: CASE EVENT DATE: 20151109
